FAERS Safety Report 5020021-8 (Version None)
Quarter: 2006Q2

REPORT INFORMATION
  Report Type: 
  Country: None (occurrence: None)
  Receive Date: 20060607
  Receipt Date: 20060531
  Transmission Date: 20061013
  Serious: Yes (Hospitalization)
  Sender: FDA-Public Use
  Company Number: BR-JNJFOC-20060600827

PATIENT
  Age: 18 Year
  Sex: Female
  Weight: 55 kg

DRUGS (9)
  1. TOPAMAX [Suspect]
     Indication: AFFECTIVE DISORDER
     Route: 048
  2. TOPAMAX [Suspect]
     Indication: WEIGHT LOSS DIET
     Route: 048
  3. GEODON [Concomitant]
     Indication: AFFECTIVE DISORDER
     Route: 048
  4. EFFEXOR [Concomitant]
     Route: 048
  5. EFFEXOR [Concomitant]
     Indication: DEPRESSION
     Route: 048
  6. DEPAKOTE [Concomitant]
  7. CLONAZEPAM [Concomitant]
  8. FRONTAL [Concomitant]
     Route: 048
  9. OFLOXACIN [Concomitant]
     Indication: ESCHERICHIA URINARY TRACT INFECTION

REACTIONS (6)
  - CATHETER SITE OEDEMA [None]
  - CATHETER SITE PAIN [None]
  - DYSURIA [None]
  - ESCHERICHIA URINARY TRACT INFECTION [None]
  - NEPHROLITHIASIS [None]
  - PYREXIA [None]
